FAERS Safety Report 19256143 (Version 1)
Quarter: 2021Q2

REPORT INFORMATION
  Report Type: Spontaneous
  Country: US (occurrence: US)
  Receive Date: 20210513
  Receipt Date: 20210513
  Transmission Date: 20210717
  Serious: No
  Sender: FDA-Public Use
  Company Number: US-SA-2021SA155635

PATIENT
  Age: 68 Year
  Sex: Female

DRUGS (5)
  1. DUPIXENT [Suspect]
     Active Substance: DUPILUMAB
     Indication: ASTHMA
     Dosage: 200 MG, QOW
     Route: 058
     Dates: start: 20200731
  2. DUPIXENT [Suspect]
     Active Substance: DUPILUMAB
     Dosage: 100 MG, QOW
     Route: 058
  3. MONTELUKAST [Concomitant]
     Active Substance: MONTELUKAST SODIUM
  4. LEVOTHYROXIN [Concomitant]
     Active Substance: LEVOTHYROXINE
  5. LIOTHYRONINE [Concomitant]
     Active Substance: LIOTHYRONINE

REACTIONS (2)
  - Thyroid hormones decreased [Not Recovered/Not Resolved]
  - Thyroid hormones increased [Not Recovered/Not Resolved]

NARRATIVE: CASE EVENT DATE: 2021
